FAERS Safety Report 23111786 (Version 2)
Quarter: 2023Q4

REPORT INFORMATION
  Report Type: Spontaneous
  Country: DE (occurrence: DE)
  Receive Date: 20231026
  Receipt Date: 20231226
  Transmission Date: 20240110
  Serious: Yes (Hospitalization, Other)
  Sender: FDA-Public Use
  Company Number: DE-SA-SAC20230519001177

PATIENT
  Age: 83 Year
  Sex: Female
  Weight: 69.3 kg

DRUGS (23)
  1. CARFILZOMIB [Suspect]
     Active Substance: CARFILZOMIB
     Indication: Plasma cell myeloma refractory
     Dosage: 34 MG, 2 TIMES 1,2
     Route: 065
     Dates: start: 20230426, end: 20230427
  2. CARFILZOMIB [Suspect]
     Active Substance: CARFILZOMIB
     Dosage: 96 MG (6 TIMES 1,2,8,9,15,16)
     Route: 065
     Dates: start: 20230524, end: 20230608
  3. CARFILZOMIB [Suspect]
     Active Substance: CARFILZOMIB
     Dosage: 96 MG, 4 TIMES 8,9,15,16
     Route: 065
     Dates: start: 20230503, end: 20230511
  4. DEXAMETHASONE [Suspect]
     Active Substance: DEXAMETHASONE
     Dosage: 20 MG (6 TIMES 1,2,8,9,15,16)
     Route: 065
     Dates: start: 20230816, end: 20230831
  5. DEXAMETHASONE [Suspect]
     Active Substance: DEXAMETHASONE
     Dosage: 20 MG (8 TIMES 1, 2, 8, 9, 15,16, 22, 23)
     Route: 065
     Dates: start: 20230621, end: 20230713
  6. DEXAMETHASONE [Suspect]
     Active Substance: DEXAMETHASONE
     Indication: Plasma cell myeloma refractory
     Dosage: 20 MG, 6 TIMES
     Route: 065
     Dates: start: 20230426, end: 20230511
  7. DEXAMETHASONE [Suspect]
     Active Substance: DEXAMETHASONE
     Dosage: 8 MG (6 TIMES 1,2,8,9,15,16)
     Route: 065
     Dates: start: 20230913, end: 20230928
  8. DEXAMETHASONE [Suspect]
     Active Substance: DEXAMETHASONE
     Dosage: 20 MG (6 TIMES 1, 2, 8, 9, 15,16
     Route: 065
     Dates: start: 20230524, end: 20230608
  9. ISATUXIMAB [Suspect]
     Active Substance: ISATUXIMAB
     Dosage: 690 MG, BIW
     Route: 065
     Dates: start: 20230621, end: 20230705
  10. ISATUXIMAB [Suspect]
     Active Substance: ISATUXIMAB
     Dosage: 690 MG, BIW
     Route: 065
     Dates: start: 20230719, end: 20230802
  11. ISATUXIMAB [Suspect]
     Active Substance: ISATUXIMAB
     Dosage: 690 MG, BIW
     Route: 065
     Dates: start: 20230816, end: 20230830
  12. ISATUXIMAB [Suspect]
     Active Substance: ISATUXIMAB
     Dosage: 690 MG, BIW
     Route: 065
     Dates: start: 20230913, end: 20230927
  13. ISATUXIMAB [Suspect]
     Active Substance: ISATUXIMAB
     Dosage: 690 MG, QW
     Route: 065
     Dates: start: 20230524, end: 20230607
  14. ISATUXIMAB [Suspect]
     Active Substance: ISATUXIMAB
     Indication: Plasma cell myeloma refractory
     Dosage: 690 MG, 4 TIMES 1,8,15,22
     Route: 065
     Dates: start: 20230426, end: 20230517
  15. ISATUXIMAB [Suspect]
     Active Substance: ISATUXIMAB
     Dosage: 690 MG, 4 TIMES 1,8,15,22
     Route: 065
     Dates: start: 20230426, end: 20230517
  16. AREDIA [Concomitant]
     Active Substance: PAMIDRONATE DISODIUM
     Indication: Supportive care
     Dosage: UNK
     Route: 065
     Dates: start: 20130926
  17. DEXTROSE [Concomitant]
     Active Substance: DEXTROSE\DEXTROSE MONOHYDRATE
     Indication: Product used for unknown indication
     Dosage: UNK
     Route: 065
     Dates: start: 20230426
  18. LYRICA [Concomitant]
     Active Substance: PREGABALIN
     Indication: Polyneuropathy
     Dosage: UNK
     Route: 065
     Dates: start: 201310
  19. MONTELUKAST [Concomitant]
     Active Substance: MONTELUKAST SODIUM
     Indication: Prophylaxis
     Dosage: UNK
     Route: 065
     Dates: start: 20230426
  20. MOVICOL [Concomitant]
     Active Substance: POLYETHYLENE GLYCOL 3350\POTASSIUM CHLORIDE\SODIUM BICARBONATE\SODIUM CHLORIDE
     Indication: Constipation
     Dosage: UNK
     Route: 065
     Dates: start: 20230831
  21. OXYCODONE [Concomitant]
     Active Substance: OXYCODONE
     Indication: Polyneuropathy
     Dosage: UNK
     Route: 065
     Dates: start: 2013
  22. PANTOPRAZOLE [Concomitant]
     Active Substance: PANTOPRAZOLE
     Indication: Product used for unknown indication
     Dosage: UNK
     Route: 065
     Dates: start: 20141120
  23. CLEMASTINE FUMARATE [Concomitant]
     Active Substance: CLEMASTINE FUMARATE
     Indication: Prophylaxis
     Dosage: UNK
     Route: 065
     Dates: start: 20230426

REACTIONS (16)
  - Hypertension [Recovered/Resolved]
  - Hyperglycaemia [Recovered/Resolved]
  - Headache [Recovering/Resolving]
  - Thrombocytopenia [Recovered/Resolved]
  - Thrombocytopenia [Recovered/Resolved]
  - Blood glucose increased [Recovering/Resolving]
  - Hypersensitivity [Recovered/Resolved]
  - Headache [Recovered/Resolved]
  - Abdominal pain upper [Unknown]
  - Epistaxis [Recovered/Resolved]
  - Nausea [Recovered/Resolved]
  - Abdominal pain [Recovered/Resolved]
  - Infusion related reaction [Recovered/Resolved]
  - Vomiting [Recovered/Resolved]
  - Diarrhoea [Recovered/Resolved]
  - Anaemia [Recovered/Resolved]

NARRATIVE: CASE EVENT DATE: 20230426
